FAERS Safety Report 25192177 (Version 1)
Quarter: 2025Q2

REPORT INFORMATION
  Report Type: Spontaneous
  Country: US (occurrence: None)
  Receive Date: 20250412
  Receipt Date: 20250412
  Transmission Date: 20250716
  Serious: Yes (Hospitalization)
  Sender: FDA-CTU
  Company Number: None

PATIENT
  Age: 67 Year
  Sex: Female

DRUGS (1)
  1. IMATINIB MESYLATE [Suspect]
     Active Substance: IMATINIB MESYLATE
     Indication: Chronic myeloid leukaemia
     Dosage: FREQUENCY : DAILY;?

REACTIONS (9)
  - Diarrhoea [None]
  - Fatigue [None]
  - Pain in extremity [None]
  - Arthralgia [None]
  - Nausea [None]
  - Poor quality sleep [None]
  - Pneumonia [None]
  - Bronchitis [None]
  - Laryngitis [None]
